FAERS Safety Report 6150597-9 (Version None)
Quarter: 2009Q2

REPORT INFORMATION
  Report Type: 
  Country: None (occurrence: None)
  Receive Date: 20090408
  Receipt Date: 20090408
  Transmission Date: 20091009
  Serious: Yes (Hospitalization)
  Sender: FDA-Public Use
  Company Number: None

PATIENT
  Sex: Male
  Weight: 82 kg

DRUGS (3)
  1. CIPROFLOXACIN HCL [Suspect]
     Indication: PROPHYLAXIS
     Dosage: 1 DOSE
     Dates: start: 20090406, end: 20090406
  2. CIPROFLOXACIN 400MG SAGENT [Suspect]
  3. CIPROFLOXACIN 400MG SAGENT [Suspect]

REACTIONS (1)
  - INFUSION SITE ERYTHEMA [None]
